FAERS Safety Report 10176877 (Version 1)
Quarter: 2014Q2

REPORT INFORMATION
  Report Type: Spontaneous
  Country: DK (occurrence: DK)
  Receive Date: 20140516
  Receipt Date: 20140516
  Transmission Date: 20141212
  Serious: Yes (Life-Threatening, Hospitalization)
  Sender: FDA-Public Use
  Company Number: DK-NOVOPROD-410307

PATIENT
  Age: 67 Year
  Sex: Female

DRUGS (1)
  1. ESTROFEM [Suspect]
     Indication: HOT FLUSH
     Dosage: 1 TAB, TWICE A WEEK
     Route: 048
     Dates: start: 199501, end: 20140217

REACTIONS (2)
  - Pulmonary embolism [Not Recovered/Not Resolved]
  - Pulmonary embolism [Unknown]
